FAERS Safety Report 23279728 (Version 1)
Quarter: 2023Q4

REPORT INFORMATION
  Report Type: Spontaneous
  Country: FR (occurrence: FR)
  Receive Date: 20231210
  Receipt Date: 20231210
  Transmission Date: 20240110
  Serious: Yes (Hospitalization, Other)
  Sender: FDA-Public Use
  Company Number: FR-AFSSAPS-CN2023001092

PATIENT
  Age: 16 Year
  Sex: Female

DRUGS (6)
  1. SERTRALINE [Suspect]
     Active Substance: SERTRALINE HYDROCHLORIDE
     Indication: Poisoning deliberate
     Dosage: 250 MILLIGRAM, 1 TOTAL
     Route: 048
     Dates: start: 20231115, end: 20231115
  2. SERTRALINE [Suspect]
     Active Substance: SERTRALINE HYDROCHLORIDE
     Dosage: 250 MILLIGRAM, 1 TOTAL
     Route: 048
     Dates: start: 20231116, end: 20231116
  3. IBUPROFEN [Suspect]
     Active Substance: IBUPROFEN
     Indication: Poisoning deliberate
     Dosage: 2.4 GRAM, 6 CP IS 400 MG 1 TOTAL
     Route: 048
     Dates: start: 20231115, end: 20231115
  4. IBUPROFEN [Suspect]
     Active Substance: IBUPROFEN
     Dosage: 9.6 GRAM, 2 PADS, 1 TOTAL
     Route: 048
     Dates: start: 20231116, end: 20231116
  5. DOLIPRANE [Suspect]
     Active Substance: ACETAMINOPHEN
     Indication: Poisoning deliberate
     Dosage: 8 GRAM, 1 TOTAL
     Route: 048
     Dates: start: 20231116, end: 20231116
  6. DOLIPRANE [Suspect]
     Active Substance: ACETAMINOPHEN
     Indication: Poisoning deliberate
     Dosage: 8 GRAM, 1 TOTAL
     Route: 065
     Dates: start: 20231116, end: 20231116

REACTIONS (7)
  - Syncope [Recovered/Resolved]
  - Chest pain [Recovered/Resolved]
  - Headache [Recovered/Resolved]
  - Toxicity to various agents [Recovered/Resolved]
  - Abdominal pain [Recovered/Resolved]
  - Vomiting [Recovered/Resolved]
  - Somnolence [Recovered/Resolved]

NARRATIVE: CASE EVENT DATE: 20231116
